FAERS Safety Report 11106337 (Version 1)
Quarter: 2015Q2

REPORT INFORMATION
  Report Type: Spontaneous
  Country: US (occurrence: None)
  Receive Date: 20150511
  Receipt Date: 20150511
  Transmission Date: 20150821
  Serious: Yes (Hospitalization)
  Sender: FDA-Public Use
  Company Number: None

PATIENT
  Age: 31 Year
  Sex: Male
  Weight: 122.47 kg

DRUGS (17)
  1. EVEROLIMUS [Suspect]
     Active Substance: EVEROLIMUS
     Indication: HODGKIN^S DISEASE
     Dosage: 5MG PO QD X 28 DAYS
     Route: 048
     Dates: start: 20131011
  2. LASIX [Concomitant]
     Active Substance: FUROSEMIDE
  3. METOPROLOL (TOPROL-XL) [Concomitant]
  4. EVEOLIMUS [Concomitant]
     Active Substance: EVEROLIMUS
  5. LANALIDOMIDE (REVLIMID) [Concomitant]
  6. LIORESAL [Concomitant]
     Active Substance: BACLOFEN
  7. WARFARIN (COUMADIN) [Concomitant]
  8. CHOLECALCIFEROL (VITAMIN D3) [Concomitant]
  9. ASCORBATE CALCIUM (VITAMIN C PO) [Concomitant]
  10. SPIRONOLACLONE (ALDACTONE) [Concomitant]
  11. LEVOTHYROXINE (SYNTHROID, LEVOXYL) [Concomitant]
  12. PREGABALIN (LYRICA PO) [Concomitant]
  13. DIGOXIN (LANOXIN) [Concomitant]
  14. LISINOPRIL (PRINIVIL, ZESTRIL) [Concomitant]
  15. MULTI-VITMAINS WITH FLUORIDE (MULTI-VITAMIN PO) [Concomitant]
  16. REVLIMID [Suspect]
     Active Substance: LENALIDOMIDE
     Indication: HODGKIN^S DISEASE
     Dosage: 10MG PO QD X 21 DAYS
     Route: 048
     Dates: start: 20131011
  17. POTASSIUM CHLORIDE SA (K-DUR,KLOR-CON) [Concomitant]

REACTIONS (2)
  - Pleural effusion [None]
  - Pneumonia [None]

NARRATIVE: CASE EVENT DATE: 20150430
